FAERS Safety Report 21908061 (Version 2)
Quarter: 2023Q1

REPORT INFORMATION
  Report Type: Spontaneous
  Country: CA (occurrence: CA)
  Receive Date: 20230125
  Receipt Date: 20230310
  Transmission Date: 20230418
  Serious: Yes (Other)
  Sender: FDA-Public Use
  Company Number: CA-PFIZER INC-202300026469

PATIENT
  Age: 56 Year
  Sex: Female

DRUGS (5)
  1. ABRILADA [Suspect]
     Active Substance: ADALIMUMAB-AFZB
     Indication: Crohn^s disease
     Dosage: 1 DF 160 MG WEEK 0, 80MG WEEK 2, THEN 40MG EVERY SECOND WEEK, PREFILLED SYRINGE
     Route: 058
     Dates: start: 20221118
  2. CIPROFLOXACIN [Concomitant]
     Active Substance: CIPROFLOXACIN
     Dosage: 500 MG, 2X/DAY
     Route: 065
     Dates: start: 20221119
  3. FLAGYL [Concomitant]
     Active Substance: METRONIDAZOLE\METRONIDAZOLE HYDROCHLORIDE
     Dosage: 50 MG, 2X/DAY
     Route: 065
     Dates: start: 20221119
  4. METHOTREXATE [Concomitant]
     Active Substance: METHOTREXATE
     Dosage: DOSAGE NOT AVAILABLE - DISCONTINUED
     Route: 065
  5. OCTOTIDE [Concomitant]
     Dosage: 5 MG THREE TIMES EVERY 12 DAYS
     Route: 065
     Dates: start: 2012

REACTIONS (2)
  - Pyoderma gangrenosum [Not Recovered/Not Resolved]
  - Off label use [Unknown]

NARRATIVE: CASE EVENT DATE: 20230101
